FAERS Safety Report 17507667 (Version 1)
Quarter: 2020Q1

REPORT INFORMATION
  Report Type: Spontaneous
  Country: US (occurrence: US)
  Receive Date: 20200306
  Receipt Date: 20200306
  Transmission Date: 20200409
  Serious: No
  Sender: FDA-Public Use
  Company Number: US-ASTRAZENECA-2020SE20699

PATIENT
  Sex: Male
  Weight: 95.3 kg

DRUGS (6)
  1. CHOLESTEROL MEDICATION NOT A STATIN [Concomitant]
  2. NYSTATIN. [Concomitant]
     Active Substance: NYSTATIN
  3. AMOXICILLIN. [Concomitant]
     Active Substance: AMOXICILLIN
  4. SYMBICORT [Suspect]
     Active Substance: BUDESONIDE\FORMOTEROL FUMARATE DIHYDRATE
     Indication: PNEUMONIA
     Dosage: UNKNOWN UNKNOWN
     Route: 055
     Dates: start: 20200128
  5. PREDNISONE. [Concomitant]
     Active Substance: PREDNISONE
  6. CORTISONE [Concomitant]
     Active Substance: CORTISONE

REACTIONS (10)
  - Candida infection [Unknown]
  - Throat irritation [Unknown]
  - Speech disorder [Unknown]
  - Off label use [Unknown]
  - Product use in unapproved indication [Unknown]
  - Tongue discolouration [Unknown]
  - Appetite disorder [Unknown]
  - Pain [Unknown]
  - Oropharyngeal pain [Unknown]
  - Dysphonia [Unknown]
